FAERS Safety Report 14787155 (Version 3)
Quarter: 2021Q1

REPORT INFORMATION
  Report Type: Other
  Country: GB (occurrence: GB)
  Receive Date: 20180421
  Receipt Date: 20210330
  Transmission Date: 20210419
  Serious: Yes (Death)
  Sender: FDA-Public Use
  Company Number: GB-ROCHE-2081609

PATIENT
  Age: 49 Year
  Sex: Female

DRUGS (30)
  1. TRASTUZUMAB EMTANSINE [Suspect]
     Active Substance: ADO-TRASTUZUMAB EMTANSINE
     Indication: BREAST CANCER METASTATIC
     Route: 042
     Dates: start: 20170330, end: 20170608
  2. PERTUZUMAB. [Suspect]
     Active Substance: PERTUZUMAB
     Dosage: MAINTENANCE DOSE
     Route: 042
     Dates: start: 20151120
  3. LANSOPRAZOLE. [Concomitant]
     Active Substance: LANSOPRAZOLE
  4. ZOPICLONE [Concomitant]
     Active Substance: ZOPICLONE
  5. MORPHINE SULPHATE [Concomitant]
     Active Substance: MORPHINE SULFATE
  6. CALCICHEW [Concomitant]
     Active Substance: CALCIUM CARBONATE
  7. ZOLEDRONIC ACID [Concomitant]
     Active Substance: ZOLEDRONIC ACID
  8. CHLORAMPHENICOL [Concomitant]
     Active Substance: CHLORAMPHENICOL
  9. GLYCOPYRRONIUM [Concomitant]
     Active Substance: GLYCOPYRRONIUM
  10. DOCETAXEL. [Suspect]
     Active Substance: DOCETAXEL
     Route: 042
     Dates: start: 20151120
  11. HALOPERIDOL. [Concomitant]
     Active Substance: HALOPERIDOL
  12. MICONAZOLE. [Concomitant]
     Active Substance: MICONAZOLE
  13. DEXAMETHASONE. [Concomitant]
     Active Substance: DEXAMETHASONE
  14. MIGRALEVE (UNITED KINGDOM) [Concomitant]
  15. NYSTATIN. [Concomitant]
     Active Substance: NYSTATIN
  16. CLOTRIMAZOLE. [Concomitant]
     Active Substance: CLOTRIMAZOLE
  17. MIDAZOLAM. [Concomitant]
     Active Substance: MIDAZOLAM
  18. TRASTUZUMAB. [Suspect]
     Active Substance: TRASTUZUMAB
     Dosage: MAINTENANCE DOSE
     Route: 042
     Dates: start: 20151120
  19. FILGRASTIM [Concomitant]
     Active Substance: FILGRASTIM
  20. DOMPERIDONE [Concomitant]
     Active Substance: DOMPERIDONE
  21. PERTUZUMAB. [Suspect]
     Active Substance: PERTUZUMAB
     Indication: BREAST CANCER METASTATIC
     Dosage: LOADING DOSE
     Route: 042
     Dates: start: 20151023, end: 20151023
  22. LETROZOLE. [Suspect]
     Active Substance: LETROZOLE
     Indication: BREAST CANCER METASTATIC
     Route: 048
     Dates: start: 20160308
  23. CHLORPHENIRAMINE. [Concomitant]
     Active Substance: CHLORPHENIRAMINE
  24. ONDANSETRON [Concomitant]
     Active Substance: ONDANSETRON
  25. HALOPERIDOL. [Concomitant]
     Active Substance: HALOPERIDOL
  26. TRASTUZUMAB EMTANSINE [Suspect]
     Active Substance: ADO-TRASTUZUMAB EMTANSINE
     Route: 042
     Dates: start: 20161201
  27. DOCETAXEL. [Suspect]
     Active Substance: DOCETAXEL
     Indication: BREAST CANCER METASTATIC
     Dosage: LOADING DOSE
     Route: 042
     Dates: start: 20151022, end: 20151022
  28. TRASTUZUMAB. [Suspect]
     Active Substance: TRASTUZUMAB
     Indication: BREAST CANCER METASTATIC
     Dosage: LOADING DOSE
     Route: 042
     Dates: start: 20151023, end: 20151023
  29. HYDROCORTISONE. [Concomitant]
     Active Substance: HYDROCORTISONE
  30. TRIMETHOPRIM. [Concomitant]
     Active Substance: TRIMETHOPRIM

REACTIONS (8)
  - Rectal haemorrhage [Fatal]
  - Insomnia [Recovered/Resolved]
  - Conjunctivitis [Recovered/Resolved]
  - Neuropathy peripheral [Recovered/Resolved]
  - Urinary tract infection [Recovered/Resolved]
  - Nausea [Recovered/Resolved]
  - Oral candidiasis [Recovered/Resolved]
  - Vulvovaginal candidiasis [Recovered/Resolved]

NARRATIVE: CASE EVENT DATE: 201705
